FAERS Safety Report 8962264 (Version 1)
Quarter: 2012Q4

REPORT INFORMATION
  Report Type: 
  Country: NL (occurrence: NL)
  Receive Date: 20121212
  Receipt Date: 20121212
  Transmission Date: 20130627
  Serious: Yes (Hospitalization)
  Sender: FDA-Public Use
  Company Number: NL-PFIZER INC-2012308527

PATIENT
  Age: 43 Year
  Sex: Female
  Weight: 76.6 kg

DRUGS (3)
  1. GENOTROPIN [Suspect]
     Dosage: 0.1 mg, 1x/day, 7 injections/week
     Route: 058
     Dates: start: 20041216
  2. THYRAX [Concomitant]
     Indication: TSH DECREASED
     Dosage: UNK
     Dates: start: 2007
  3. THYRAX [Concomitant]
     Indication: PRIMARY HYPOTHYROIDISM

REACTIONS (1)
  - Renal disorder [Unknown]
